FAERS Safety Report 15118857 (Version 1)
Quarter: 2018Q3

REPORT INFORMATION
  Report Type: Spontaneous
  Country: US (occurrence: US)
  Receive Date: 20180709
  Receipt Date: 20180709
  Transmission Date: 20181010
  Serious: Yes (Other)
  Sender: FDA-Public Use
  Company Number: US-TEVA-2018-US-921850

PATIENT
  Age: 63 Year
  Sex: Male

DRUGS (3)
  1. AMIODARONE [Concomitant]
     Active Substance: AMIODARONE
     Indication: CARDIAC ARREST
     Route: 065
  2. WARFARIN [Suspect]
     Active Substance: WARFARIN
     Indication: ANTICOAGULANT THERAPY
     Route: 065
  3. EPINEPHRINE. [Concomitant]
     Active Substance: EPINEPHRINE
     Indication: CARDIAC ARREST
     Dosage: MULTIPLE DOSES
     Route: 065

REACTIONS (7)
  - Mediastinal haematoma [Recovered/Resolved]
  - Bronchospasm [Unknown]
  - Cardiac ventricular disorder [Unknown]
  - Pneumothorax [Unknown]
  - Electrocardiogram abnormal [Unknown]
  - Pericardial effusion [Recovered/Resolved]
  - Pleural effusion [Unknown]
